FAERS Safety Report 23336372 (Version 1)
Quarter: 2023Q4

REPORT INFORMATION
  Report Type: Spontaneous
  Country: JP (occurrence: JP)
  Receive Date: 20231225
  Receipt Date: 20231225
  Transmission Date: 20240110
  Serious: Yes (Hospitalization, Other)
  Sender: FDA-Public Use
  Company Number: JP-asahikaseip_PROD-TRB20204307

PATIENT
  Age: 8 Decade
  Sex: Female

DRUGS (4)
  1. RECLAST [Suspect]
     Active Substance: ZOLEDRONIC ACID
     Indication: Product used for unknown indication
     Dosage: 5 MG, Q12MO
     Route: 041
     Dates: start: 202205
  2. RECLAST [Suspect]
     Active Substance: ZOLEDRONIC ACID
     Dosage: 5 MG, Q12MO
     Route: 065
     Dates: start: 202305
  3. TERIPARATIDE ACETATE [Suspect]
     Active Substance: TERIPARATIDE ACETATE
     Indication: Product used for unknown indication
     Dosage: 28.2 UG, QW2 (AUTOINJECTOR)
     Route: 058
     Dates: start: 202003
  4. TERIPARATIDE ACETATE [Suspect]
     Active Substance: TERIPARATIDE ACETATE
     Dosage: 28.2 UG, QW2 (AUTOINJECTOR)
     Route: 058
     Dates: start: 202005

REACTIONS (6)
  - Spinal compression fracture [Unknown]
  - Blood thyroid stimulating hormone increased [Not Recovered/Not Resolved]
  - Loose tooth [Unknown]
  - Anxiety disorder [Not Recovered/Not Resolved]
  - Malaise [Recovered/Resolved]
  - Depression [Not Recovered/Not Resolved]

NARRATIVE: CASE EVENT DATE: 20200101
